FAERS Safety Report 4654915-X (Version None)
Quarter: 2005Q2

REPORT INFORMATION
  Report Type: 
  Country: None (occurrence: None)
  Receive Date: 20050506
  Receipt Date: 20040819
  Transmission Date: 20051028
  Serious: No
  Sender: FDA-Public Use
  Company Number: US-GLAXOSMITHKLINE-A0522818A

PATIENT
  Sex: Female

DRUGS (1)
  1. AMOXIL [Suspect]
     Indication: ILL-DEFINED DISORDER
     Dosage: 500MG FOUR TIMES PER DAY
     Route: 048
     Dates: start: 20040817, end: 20040818

REACTIONS (5)
  - ASTHENIA [None]
  - HEADACHE [None]
  - INFLUENZA [None]
  - MYALGIA [None]
  - PYREXIA [None]
